FAERS Safety Report 11129737 (Version 1)
Quarter: 2015Q2

REPORT INFORMATION
  Report Type: Spontaneous
  Country: US (occurrence: US)
  Receive Date: 20150521
  Receipt Date: 20150521
  Transmission Date: 20150821
  Serious: Yes (Hospitalization)
  Sender: FDA-Public Use
  Company Number: US-HOSPIRA-2774356

PATIENT
  Age: 14 Year
  Sex: Female

DRUGS (15)
  1. CLOFARABINE [Suspect]
     Active Substance: CLOFARABINE
     Indication: PRECURSOR B-LYMPHOBLASTIC LYMPHOMA
     Dosage: NOT REPORTED
     Route: 065
     Dates: start: 20131226, end: 20140810
  2. METHOTREXATE [Suspect]
     Active Substance: METHOTREXATE
     Indication: PRECURSOR B-LYMPHOBLASTIC LYMPHOMA
     Route: 042
     Dates: start: 20131226, end: 20141114
  3. VINCRISTINE SULFATE. [Suspect]
     Active Substance: VINCRISTINE SULFATE
     Indication: PRECURSOR B-LYMPHOBLASTIC LYMPHOMA
     Dosage: IV PUSH OVER 1 MINUTE OR INFUSION VIA MINIBAG ON DAYS 1, 11, 21, 31 AND 41
     Route: 042
     Dates: start: 20131226, end: 20141114
  4. METHOTREXATE [Suspect]
     Active Substance: METHOTREXATE
     Indication: PRECURSOR B-LYMPHOBLASTIC LYMPHOMA
     Dosage: 3-8.99
     Route: 037
     Dates: start: 20131226, end: 20141114
  5. VINCRISTINE SULFATE. [Suspect]
     Active Substance: VINCRISTINE SULFATE
     Indication: PRECURSOR B-LYMPHOBLASTIC LYMPHOMA
     Dosage: IV PUSH OVER 1 MINUTE OR INFUSION VIA MINIBAG
     Route: 042
     Dates: start: 20131226, end: 20141114
  6. VINCRISTINE SULFATE. [Suspect]
     Active Substance: VINCRISTINE SULFATE
     Indication: PRECURSOR B-LYMPHOBLASTIC LYMPHOMA
     Dosage: DURING THE FIFTH COURSE
     Route: 042
     Dates: start: 20131226, end: 20141114
  7. METHOTREXATE [Suspect]
     Active Substance: METHOTREXATE
     Indication: PRECURSOR B-LYMPHOBLASTIC LYMPHOMA
     Dosage: 2-2.99
     Route: 037
     Dates: start: 20131226, end: 20141114
  8. METHOTREXATE [Suspect]
     Active Substance: METHOTREXATE
     Indication: PRECURSOR B-LYMPHOBLASTIC LYMPHOMA
     Route: 037
     Dates: start: 20131226, end: 20141114
  9. METHOTREXATE [Suspect]
     Active Substance: METHOTREXATE
     Indication: PRECURSOR B-LYMPHOBLASTIC LYMPHOMA
     Route: 041
     Dates: start: 20131226, end: 20141114
  10. PEGASPARGASE [Suspect]
     Active Substance: PEGASPARGASE
     Indication: PRECURSOR B-LYMPHOBLASTIC LYMPHOMA
     Dosage: DURING THE FIFTH COURSE
     Route: 042
     Dates: start: 20131226, end: 20141106
  11. METHOTREXATE [Suspect]
     Active Substance: METHOTREXATE
     Indication: PRECURSOR B-LYMPHOBLASTIC LYMPHOMA
     Route: 042
     Dates: start: 20131226, end: 20141114
  12. METHOTREXATE [Suspect]
     Active Substance: METHOTREXATE
     Indication: PRECURSOR B-LYMPHOBLASTIC LYMPHOMA
     Dosage: DAYS 1 AND 31
     Route: 037
     Dates: start: 20131226, end: 20141114
  13. METHOTREXATE [Suspect]
     Active Substance: METHOTREXATE
     Indication: PRECURSOR B-LYMPHOBLASTIC LYMPHOMA
     Route: 037
     Dates: start: 20131226, end: 20141114
  14. PEGASPARGASE [Suspect]
     Active Substance: PEGASPARGASE
     Indication: PRECURSOR B-LYMPHOBLASTIC LYMPHOMA
     Dosage: DURING THE FIFTH COURSE
     Route: 042
     Dates: start: 20131226, end: 20141106
  15. METHOTREXATE [Suspect]
     Active Substance: METHOTREXATE
     Indication: PRECURSOR B-LYMPHOBLASTIC LYMPHOMA
     Route: 041
     Dates: start: 20131226, end: 20141114

REACTIONS (6)
  - Atelectasis [Recovered/Resolved]
  - Sepsis [Recovered/Resolved]
  - Febrile neutropenia [Recovered/Resolved]
  - Vomiting [Recovered/Resolved]
  - Respiratory failure [Recovered/Resolved]
  - Lethargy [Recovered/Resolved]

NARRATIVE: CASE EVENT DATE: 20141114
